FAERS Safety Report 19511081 (Version 1)
Quarter: 2021Q3

REPORT INFORMATION
  Report Type: Spontaneous
  Country: CN (occurrence: CN)
  Receive Date: 20210709
  Receipt Date: 20210709
  Transmission Date: 20211014
  Serious: Yes (Other)
  Sender: FDA-Public Use
  Company Number: CN-ROCHE-2861046

PATIENT
  Age: 68 Year
  Sex: Male

DRUGS (3)
  1. BEVACIZUMAB. [Suspect]
     Active Substance: BEVACIZUMAB
     Indication: ADENOCARCINOMA
     Route: 041
     Dates: start: 20200828, end: 20210517
  2. AMIFOSTINE. [Concomitant]
     Active Substance: AMIFOSTINE
     Route: 041
     Dates: start: 20210517, end: 20210531
  3. RALTITREXED [Suspect]
     Active Substance: RALTITREXED
     Indication: ADENOCARCINOMA
     Route: 041
     Dates: start: 20200831, end: 20210518

REACTIONS (1)
  - Hypoxia [Recovering/Resolving]

NARRATIVE: CASE EVENT DATE: 20210517
